FAERS Safety Report 9129937 (Version 3)
Quarter: 2013Q2

REPORT INFORMATION
  Report Type: Spontaneous
  Country: US (occurrence: US)
  Receive Date: 20130228
  Receipt Date: 20130415
  Transmission Date: 20140414
  Serious: Yes (Hospitalization, Other)
  Sender: FDA-Public Use
  Company Number: CHPA2013US003570

PATIENT
  Age: 66 Year
  Sex: Male
  Weight: 68.27 kg

DRUGS (3)
  1. PRIVATE LABEL [Suspect]
     Indication: SMOKING CESSATION THERAPY
     Dosage: 21 MG, QD
     Route: 062
     Dates: start: 201210, end: 20130216
  2. COUMADINE [Concomitant]
     Indication: THROMBOSIS
     Dosage: UNK, UNK
  3. BABY ASPIRIN [Concomitant]
     Dosage: UNK, UNK

REACTIONS (4)
  - Thrombosis [Recovering/Resolving]
  - Concomitant disease aggravated [Recovered/Resolved]
  - Deep vein thrombosis [Unknown]
  - Incorrect drug administration duration [Unknown]
